FAERS Safety Report 9302221 (Version 3)
Quarter: 2013Q3

REPORT INFORMATION
  Report Type: Spontaneous
  Country: US (occurrence: US)
  Receive Date: 20130522
  Receipt Date: 20130820
  Transmission Date: 20140515
  Serious: Yes (Death)
  Sender: FDA-Public Use
  Company Number: US-B.I. PHARMACEUTICALS,INC./RIDGEFIELD-2013-BI-13628BP

PATIENT
  Age: 71 Year
  Sex: Male

DRUGS (7)
  1. AGGRENOX [Suspect]
     Indication: TRANSIENT ISCHAEMIC ATTACK
     Dosage: STRENGTH: 25 MG / 200 MG; DAILY DOSE: 50 MG / 400 MG
     Route: 048
     Dates: start: 201003
  2. LOPRESSOR [Concomitant]
     Indication: HYPERTENSION
     Route: 048
  3. ELAVIL [Concomitant]
     Indication: DIABETIC NEUROPATHY
     Route: 048
  4. NORVASC [Concomitant]
     Dates: start: 201009
  5. ZOCOR [Concomitant]
     Dates: start: 201009
  6. PRILOSEC [Concomitant]
     Dates: start: 201009
  7. COREG [Concomitant]
     Dates: start: 201009

REACTIONS (1)
  - Renal failure chronic [Fatal]
